FAERS Safety Report 23040574 (Version 2)
Quarter: 2023Q4

REPORT INFORMATION
  Report Type: Report from Study
  Country: CA (occurrence: None)
  Receive Date: 20231006
  Receipt Date: 20231101
  Transmission Date: 20240110
  Serious: Yes (Death, Other)
  Sender: FDA-Public Use
  Company Number: 2023A226278

PATIENT
  Age: 912 Month
  Sex: Male

DRUGS (1)
  1. TAGRISSO [Suspect]
     Active Substance: OSIMERTINIB
     Indication: Non-small cell lung cancer metastatic
     Route: 048
     Dates: start: 20220915

REACTIONS (2)
  - Lung neoplasm malignant [Fatal]
  - Drug ineffective [Fatal]

NARRATIVE: CASE EVENT DATE: 20230201
